FAERS Safety Report 4490859-4 (Version None)
Quarter: 2004Q4

REPORT INFORMATION
  Report Type: 
  Country: None (occurrence: None)
  Receive Date: 20041102
  Receipt Date: 20041027
  Transmission Date: 20050328
  Serious: Yes (Hospitalization)
  Sender: FDA-Public Use
  Company Number: PHBS2004TR14398

PATIENT
  Age: 73 Year
  Sex: Female

DRUGS (1)
  1. VALSARTAN + HYDROCHLOROTHIAZIDE [Suspect]
     Indication: HYPERTENSION
     Dosage: VAL 160 / HCT 12.5 MG/DAY

REACTIONS (10)
  - BLOOD PRESSURE SYSTOLIC DECREASED [None]
  - BLOOD SODIUM DECREASED [None]
  - CHEST PAIN [None]
  - DIZZINESS [None]
  - ELECTROCARDIOGRAM ST SEGMENT ELEVATION [None]
  - HYPOKALAEMIA [None]
  - LETHARGY [None]
  - MYOCARDIAL INFARCTION [None]
  - PYREXIA [None]
  - RESTLESSNESS [None]
